FAERS Safety Report 12305492 (Version 2)
Quarter: 2016Q2

REPORT INFORMATION
  Report Type: Spontaneous
  Country: RU (occurrence: RU)
  Receive Date: 20160426
  Receipt Date: 20160513
  Transmission Date: 20160815
  Serious: Yes (Other)
  Sender: FDA-Public Use
  Company Number: RU-JNJFOC-20160422534

PATIENT
  Age: 38 Year
  Sex: Male

DRUGS (3)
  1. SIMEPREVIR [Suspect]
     Active Substance: SIMEPREVIR
     Indication: HEPATITIS C
     Dosage: 12 WEEK THERAPY
     Route: 065
  2. PEGINTERFERON ALFA-2A [Suspect]
     Active Substance: PEGINTERFERON ALFA-2A
     Indication: HEPATITIS C
     Dosage: 48 WEEK THERAPY
     Route: 058
  3. RIBAVIRIN. [Suspect]
     Active Substance: RIBAVIRIN
     Indication: HEPATITIS C
     Dosage: 48 WEEK THERAPY

REACTIONS (14)
  - Aspartate aminotransferase increased [Unknown]
  - Thrombocytopenia [Unknown]
  - Influenza like illness [Unknown]
  - Bilirubin conjugated increased [Unknown]
  - Blood bilirubin increased [Unknown]
  - Mucous membrane disorder [Unknown]
  - Anaemia [Unknown]
  - Hepatic encephalopathy [Unknown]
  - Hyperaesthesia [Unknown]
  - Alanine aminotransferase increased [Unknown]
  - Cough [Unknown]
  - Fatigue [Unknown]
  - Neutropenia [Unknown]
  - Hepatitis C [Unknown]
